FAERS Safety Report 10056727 (Version 2)
Quarter: 2014Q2

REPORT INFORMATION
  Report Type: Report from Study
  Country: KR (occurrence: KR)
  Receive Date: 20140403
  Receipt Date: 20140530
  Transmission Date: 20141212
  Serious: Yes (Hospitalization)
  Sender: FDA-Public Use
  Company Number: KR-DSJP-DSJ-2014-103203

PATIENT
  Sex: 0

DRUGS (11)
  1. BLINDED OLMESARTAN AMLODIPINE HYDROCHLOROTHIAZIDE [Suspect]
     Indication: HYPERTENSION
     Dosage: UNK, QD
     Route: 048
     Dates: start: 20140327
  2. BLINDED OLMESARTAN-HCTZ [Suspect]
     Indication: HYPERTENSION
     Dosage: UNK, QD
     Route: 048
     Dates: start: 20140327
  3. ASPIRIN [Concomitant]
     Indication: ANGINA PECTORIS
     Dosage: 100MG
     Route: 048
     Dates: start: 20130318
  4. CLOPIDOGREL [Concomitant]
     Indication: ANGINA PECTORIS
     Dosage: 75MG
     Route: 048
     Dates: start: 20130318
  5. PITAVASTATIN CALCIUM [Concomitant]
     Indication: PROPHYLAXIS
     Dosage: 1MG
     Route: 048
     Dates: start: 20121108
  6. THIOCTIC ACID [Concomitant]
     Indication: PROPHYLAXIS
     Dosage: 600MG
     Route: 048
     Dates: start: 20130506
  7. LANTUS SOLOSTAR [Concomitant]
     Indication: DIABETES MELLITUS
     Dosage: 21U
     Route: 058
     Dates: start: 2012, end: 20140430
  8. LANTUS SOLOSTAR [Concomitant]
     Dosage: 19U
     Route: 058
     Dates: start: 20140430
  9. KREMEZIN [Concomitant]
     Indication: PROPHYLAXIS
     Dosage: 2G
     Route: 048
     Dates: start: 20121226
  10. POLYSTYRENE SULFONATE [Concomitant]
     Indication: PROPHYLAXIS
     Dosage: 2PKG
     Route: 048
     Dates: start: 20121212
  11. LANTUS SOLOSTAR [Concomitant]
     Indication: DIABETES MELLITUS
     Dosage: 19U
     Route: 058
     Dates: start: 20140430

REACTIONS (3)
  - Lower limb fracture [Recovered/Resolved]
  - Road traffic accident [None]
  - Walking aid user [None]
